FAERS Safety Report 7569704 (Version 4)
Quarter: 2013Q4

REPORT INFORMATION
  Report Type: Report from Study
  Country: BR (occurrence: BR)
  Receive Date: 20100901
  Receipt Date: 20131206
  Transmission Date: 20140711
  Serious: Yes (Other)
  Sender: FDA-Public Use
  Company Number: BR-ROCHE-723255

PATIENT
  Age: 19 Year
  Sex: Male
  Weight: 119 kg

DRUGS (12)
  1. ACTEMRA [Suspect]
     Indication: RHEUMATOID ARTHRITIS
     Route: 042
     Dates: start: 20100121, end: 20100121
  2. ACTEMRA [Suspect]
     Route: 042
     Dates: start: 20100221, end: 20100221
  3. ACTEMRA [Suspect]
     Route: 042
     Dates: start: 20100321, end: 20100321
  4. ACTEMRA [Suspect]
     Dosage: TREATMENT INTERRUPTED DUE TO UNSPECIFIED REASONS.
     Route: 042
  5. ACTEMRA [Suspect]
     Route: 042
  6. ACTEMRA [Suspect]
     Dosage: MOST RECENT INFUSION ON 01/OCT/2013
     Route: 042
  7. PREDNISONE [Concomitant]
     Route: 065
  8. DILBLOC [Concomitant]
     Route: 065
  9. NEBILET [Concomitant]
     Route: 065
  10. CORTICORTEN [Concomitant]
     Route: 065
  11. NIMESULIDE [Concomitant]
     Route: 065
  12. FLUOXETIN [Concomitant]

REACTIONS (11)
  - Osteonecrosis [Unknown]
  - Drug ineffective [Unknown]
  - Pain [Unknown]
  - White blood cell count increased [Unknown]
  - Red blood cell sedimentation rate abnormal [Unknown]
  - Pain in extremity [Recovering/Resolving]
  - Pain in extremity [Recovering/Resolving]
  - Nasopharyngitis [Recovered/Resolved]
  - Ear pain [Not Recovered/Not Resolved]
  - Insulin tolerance test abnormal [Not Recovered/Not Resolved]
  - Influenza [Recovered/Resolved]
